FAERS Safety Report 18770437 (Version 1)
Quarter: 2021Q1

REPORT INFORMATION
  Report Type: Report from Study
  Country: None (occurrence: CA)
  Receive Date: 20210122
  Receipt Date: 20210122
  Transmission Date: 20210419
  Serious: Yes (Other)
  Sender: FDA-Public Use
  Company Number: CA-ABBVIE-20K-028-3486236-00

PATIENT
  Sex: Female

DRUGS (4)
  1. RINVOQ [Suspect]
     Active Substance: UPADACITINIB
     Route: 048
     Dates: start: 20200203
  2. PREDNISONE. [Concomitant]
     Active Substance: PREDNISONE
  3. PREDNISONE. [Concomitant]
     Active Substance: PREDNISONE
     Indication: PRODUCT USED FOR UNKNOWN INDICATION
  4. RINVOQ [Suspect]
     Active Substance: UPADACITINIB
     Indication: RHEUMATOID ARTHRITIS
     Route: 048
     Dates: start: 20200129, end: 2020

REACTIONS (9)
  - Overweight [Unknown]
  - Traumatic lung injury [Unknown]
  - Heart rate increased [Unknown]
  - Lung opacity [Unknown]
  - Pulmonary fibrosis [Unknown]
  - Rheumatoid arthritis [Unknown]
  - Oxygen saturation decreased [Not Recovered/Not Resolved]
  - Pulmonary congestion [Unknown]
  - Pneumonia [Recovered/Resolved]

NARRATIVE: CASE EVENT DATE: 2020
